FAERS Safety Report 13070016 (Version 1)
Quarter: 2016Q4

REPORT INFORMATION
  Report Type: Spontaneous
  Country: US (occurrence: US)
  Receive Date: 20161228
  Receipt Date: 20161228
  Transmission Date: 20170207
  Serious: Yes (Other)
  Sender: FDA-Public Use
  Company Number: US-SAOL THERAPEUTICS-2016SAO01289

PATIENT
  Age: 8 Year
  Sex: Female

DRUGS (20)
  1. LIORESAL [Suspect]
     Active Substance: BACLOFEN
     Indication: CRANIOCEREBRAL INJURY
     Dosage: 780 ?G, \DAY
     Route: 037
     Dates: start: 20111205
  2. DUONEB [Concomitant]
     Active Substance: ALBUTEROL SULFATE\IPRATROPIUM BROMIDE
     Dosage: 3 ML, AS NEEDED
  3. SINGULAIR [Concomitant]
     Active Substance: MONTELUKAST SODIUM
     Dosage: 10 MG, 1X/DAY
  4. ALBUTEROL SOLUTION [Concomitant]
     Dosage: 3 ML, 2X/DAY
  5. LIORESAL [Suspect]
     Active Substance: BACLOFEN
     Indication: MUSCLE SPASTICITY
     Dosage: 100 ?G, \DAY
     Route: 037
  6. MUCOMYST [Concomitant]
     Active Substance: ACETYLCYSTEINE
     Dosage: 1 DOSAGE UNITS, 2X/DAY
  7. MULTIVITAMIN [Concomitant]
     Active Substance: VITAMINS
     Dosage: 1 TABLETS, 1X/DAY
  8. FLUTICASONE [Concomitant]
     Active Substance: FLUTICASONE\FLUTICASONE PROPIONATE
     Dosage: 1 DOSAGE UNITS, 1X/DAY
  9. OXYGEN. [Concomitant]
     Active Substance: OXYGEN
     Dosage: 2L
  10. ASTEPRO SPRAY [Concomitant]
     Dosage: 2 DOSAGE UNITS, 1X/DAY
  11. KLONOPIN [Concomitant]
     Active Substance: CLONAZEPAM
     Dosage: 0.5 TABLETS, 2X/DAY
  12. ZYRTEC [Concomitant]
     Active Substance: CETIRIZINE HYDROCHLORIDE
     Dosage: 10 MG, 1X/DAY
  13. DULERA [Concomitant]
     Active Substance: FORMOTEROL FUMARATE DIHYDRATE\MOMETASONE FUROATE
     Dosage: 2 DOSAGE UNITS, 2X/DAY
  14. DANTROLENE [Concomitant]
     Active Substance: DANTROLENE
     Indication: MUSCULOSKELETAL STIFFNESS
     Dosage: 0.5 CAPSULES, 2X/DAY
  15. ROBINUL [Concomitant]
     Active Substance: GLYCOPYRROLATE
     Dosage: 2 MG, 4X/DAY
  16. OMNICEF [Concomitant]
     Active Substance: CEFDINIR
     Dosage: 8 ML, 1X/DAY
  17. BACLOFEN. [Suspect]
     Active Substance: BACLOFEN
     Route: 037
  18. KLONOPIN [Concomitant]
     Active Substance: CLONAZEPAM
     Dosage: 1 TABLETS, 1X/DAY
  19. EPIPEN [Concomitant]
     Active Substance: EPINEPHRINE
     Indication: ANAPHYLACTIC REACTION
     Dosage: UNK, AS NEEDED
  20. PULMICORT TURBUHALER [Concomitant]
     Active Substance: BUDESONIDE
     Dosage: 2 ML, 2X/DAY

REACTIONS (10)
  - Complication associated with device [Unknown]
  - Pain [Unknown]
  - Blindness [Unknown]
  - Therapy non-responder [Unknown]
  - Medical device site infection [Unknown]
  - Muscle rigidity [Unknown]
  - Culture positive [Unknown]
  - Impaired healing [Unknown]
  - Skin disorder [Unknown]
  - Wound dehiscence [Unknown]

NARRATIVE: CASE EVENT DATE: 20031020
